FAERS Safety Report 13238388 (Version 1)
Quarter: 2017Q1

REPORT INFORMATION
  Report Type: Spontaneous
  Country: US (occurrence: US)
  Receive Date: 20170215
  Receipt Date: 20170215
  Transmission Date: 20170428
  Serious: Yes (Other)
  Sender: FDA-Public Use
  Company Number: None

PATIENT
  Age: 38 Year
  Sex: Female
  Weight: 60.75 kg

DRUGS (3)
  1. ESTROGENS [Concomitant]
     Active Substance: ESTROGENS
  2. PROGESTERONE. [Concomitant]
     Active Substance: PROGESTERONE
  3. CLARITHROMYCIN. [Suspect]
     Active Substance: CLARITHROMYCIN
     Indication: UPPER RESPIRATORY TRACT INFECTION
     Route: 048

REACTIONS (4)
  - Panic attack [None]
  - Depersonalisation/derealisation disorder [None]
  - Psychotic disorder [None]
  - Anxiety [None]

NARRATIVE: CASE EVENT DATE: 20160615
